FAERS Safety Report 4972146-0 (Version None)
Quarter: 2006Q2

REPORT INFORMATION
  Report Type: 
  Country: None (occurrence: None)
  Receive Date: 20060413
  Receipt Date: 20060331
  Transmission Date: 20061013
  Serious: Yes (Death, Hospitalization)
  Sender: FDA-Public Use
  Company Number: AU-NOVOPROD-252058

PATIENT
  Age: 78 Year
  Sex: Female
  Weight: 77 kg

DRUGS (4)
  1. NOVOSEVEN [Suspect]
     Indication: INTERNATIONAL NORMALISED RATIO INCREASED
     Dosage: 23 MG, QD
     Dates: start: 20030111
  2. ASPIRIN [Concomitant]
  3. WARFARIN [Concomitant]
  4. RED BLOOD CELLS [Concomitant]
     Dosage: 1 IU, UNK

REACTIONS (2)
  - CARDIAC ARREST [None]
  - MULTI-ORGAN FAILURE [None]
